FAERS Safety Report 18204120 (Version 9)
Quarter: 2024Q3

REPORT INFORMATION
  Report Type: Report from Study
  Country: DE (occurrence: DE)
  Receive Date: 20200827
  Receipt Date: 20240925
  Transmission Date: 20241017
  Serious: Yes (Hospitalization, Other)
  Sender: BRISTOL MYERS SQUIBB
  Company Number: DE-BRISTOL-MYERS SQUIBB COMPANY-BMS-2020-067813

PATIENT
  Age: 71 Year
  Sex: Male
  Weight: 78 kg

DRUGS (9)
  1. OPDIVO [Suspect]
     Active Substance: NIVOLUMAB
     Indication: Malignant melanoma
     Dosage: 78 MG, Q3W
     Route: 042
     Dates: start: 20190703, end: 20190703
  2. YERVOY [Suspect]
     Active Substance: IPILIMUMAB
     Indication: Malignant melanoma
     Dosage: 243 MG, Q3W
     Dates: start: 20190703, end: 20190703
  3. PREDNICARBATE [Concomitant]
     Active Substance: PREDNICARBATE
     Indication: Product used for unknown indication
     Dosage: 1 DOSAGE FORM=1000 UNITS NOS
     Dates: start: 20190730
  4. GANCICLOVIR [Concomitant]
     Active Substance: GANCICLOVIR
     Indication: Product used for unknown indication
     Dosage: 300 MILLIGRAM
     Dates: start: 20190729
  5. BUTYLSCOPOLAMINE BROMIDE [Concomitant]
     Active Substance: BUTYLSCOPOLAMINE BROMIDE
     Indication: Abdominal pain
     Dosage: 20 MILLIGRAM
     Dates: start: 20190720, end: 20190721
  6. METHYLPREDNISOLONE [Concomitant]
     Active Substance: METHYLPREDNISOLONE
     Indication: Diarrhoea
     Dosage: 2 MILLIGRAM/KILOGRAM
     Dates: start: 20190715, end: 20190722
  7. POTASSIUM CHLORIDE [Concomitant]
     Active Substance: POTASSIUM CHLORIDE
     Indication: Hypokalaemia
     Dosage: 1 DOSAGE FORM=160 UNITS NOS
     Dates: start: 20190715, end: 20190729
  8. PANTOPRAZOLE SODIUM [Concomitant]
     Active Substance: PANTOPRAZOLE SODIUM
     Indication: Diarrhoea
     Dosage: 40 MILLIGRAM
     Dates: start: 20190715, end: 20190722
  9. CIPROFLOXACIN [Concomitant]
     Active Substance: CIPROFLOXACIN
     Indication: Product used for unknown indication

REACTIONS (6)
  - Thrombotic thrombocytopenic purpura [Recovering/Resolving]
  - Haemolytic anaemia [Recovering/Resolving]
  - Erysipelas [Recovered/Resolved]
  - Atrial fibrillation [Recovering/Resolving]
  - Neutrophil count increased [Recovered/Resolved]
  - Lymphoedema [Recovering/Resolving]

NARRATIVE: CASE EVENT DATE: 20190803
